FAERS Safety Report 4683552-6 (Version None)
Quarter: 2005Q2

REPORT INFORMATION
  Report Type: 
  Country: None (occurrence: None)
  Receive Date: 20050602
  Receipt Date: 20050323
  Transmission Date: 20051028
  Serious: Yes (Hospitalization)
  Sender: FDA-Public Use
  Company Number: USA050290588

PATIENT
  Age: 19 Year
  Sex: Female
  Weight: 56 kg

DRUGS (5)
  1. CYMBALTA [Suspect]
     Indication: HEADACHE
     Dosage: 20 MG DAY
     Dates: start: 20050110, end: 20050204
  2. CYMBALTA [Suspect]
     Indication: PROPHYLAXIS
     Dosage: 20 MG DAY
     Dates: start: 20050110, end: 20050204
  3. AMBIEN [Concomitant]
  4. DEPAKOTE - SLOW RELEASE(VALPROATE SEMISODIUM) [Concomitant]
  5. EXCEDRIN [Concomitant]

REACTIONS (2)
  - HEADACHE [None]
  - SUICIDE ATTEMPT [None]
